FAERS Safety Report 6488378-9 (Version None)
Quarter: 2009Q4

REPORT INFORMATION
  Report Type: 
  Country: None (occurrence: None)
  Receive Date: 20091210
  Receipt Date: 20090922
  Transmission Date: 20100525
  Serious: No
  Sender: FDA-Public Use
  Company Number: US-AMGEN-KDL362828

PATIENT
  Sex: Male

DRUGS (1)
  1. ENBREL [Suspect]
     Indication: PSORIASIS
     Route: 058
     Dates: start: 20081101

REACTIONS (6)
  - EYELIDS PRURITUS [None]
  - GINGIVAL ERYTHEMA [None]
  - GINGIVAL PAIN [None]
  - GINGIVITIS [None]
  - MOUTH ULCERATION [None]
  - PARAESTHESIA [None]
